FAERS Safety Report 8886880 (Version 1)
Quarter: 2012Q4

REPORT INFORMATION
  Report Type: 
  Country: FR (occurrence: FR)
  Receive Date: 20121105
  Receipt Date: 20121105
  Transmission Date: 20130627
  Serious: Yes (Hospitalization)
  Sender: FDA-Public Use
  Company Number: FR-PFIZER INC-2012271404

PATIENT
  Age: 7 Year
  Sex: Male

DRUGS (7)
  1. PRODILANTIN [Suspect]
     Indication: STATUS EPILEPTICUS
     Dosage: 300 mg, single
     Route: 042
     Dates: start: 20120905
  2. PRODILANTIN [Suspect]
     Dosage: 100 mg, every 8 hours
     Route: 042
  3. PRODILANTIN [Suspect]
     Dosage: 50 mg, alternate day
     Route: 042
     Dates: end: 20120914
  4. MICROPAKINE [Concomitant]
  5. LAMICTAL [Concomitant]
  6. URBANYL [Concomitant]
  7. EPITOMAX [Concomitant]

REACTIONS (4)
  - Pyrexia [Recovering/Resolving]
  - Rash morbilliform [Recovering/Resolving]
  - Oedema peripheral [Recovered/Resolved]
  - Oedema peripheral [Recovered/Resolved]
